FAERS Safety Report 13498060 (Version 3)
Quarter: 2017Q3

REPORT INFORMATION
  Report Type: Report from Study
  Country: CN (occurrence: CN)
  Receive Date: 20170501
  Receipt Date: 20170703
  Transmission Date: 20171127
  Serious: Yes (Death, Hospitalization)
  Sender: FDA-Public Use
  Company Number: CN-ROCHE-1903817

PATIENT
  Age: 62 Year
  Sex: Male
  Weight: 74 kg

DRUGS (1)
  1. ATEZOLIZUMAB. [Suspect]
     Active Substance: ATEZOLIZUMAB
     Indication: NON-SMALL CELL LUNG CANCER
     Dosage: DATE OF LAST DOSE RECEIVED PRIOR TO THE EVENT: 23/FEB/2017, 1200 MG?DATE OF LAST DOSE RECEIVED PRIOR
     Route: 042
     Dates: start: 20170223

REACTIONS (2)
  - Pericardial effusion [Recovered/Resolved]
  - Respiratory failure [Fatal]

NARRATIVE: CASE EVENT DATE: 20170303
